FAERS Safety Report 4325009-8 (Version None)
Quarter: 2004Q1

REPORT INFORMATION
  Report Type: 
  Country: None (occurrence: None)
  Receive Date: 20040326
  Receipt Date: 20040205
  Transmission Date: 20041129
  Serious: Yes (Life-Threatening, Hospitalization)
  Sender: FDA-Public Use
  Company Number: BR-ROCHE-358103

PATIENT
  Age: 35 Year
  Sex: Male
  Weight: 62 kg

DRUGS (29)
  1. MYCOPHENOLATE MOFETIL [Suspect]
     Route: 048
     Dates: start: 20031125, end: 20040318
  2. MYCOPHENOLATE MOFETIL [Suspect]
     Route: 048
     Dates: start: 20030923, end: 20031015
  3. MYCOPHENOLATE MOFETIL [Suspect]
     Route: 048
     Dates: start: 20031016, end: 20031030
  4. MYCOPHENOLATE MOFETIL [Suspect]
     Route: 048
     Dates: start: 20031101, end: 20031115
  5. MYCOPHENOLATE MOFETIL [Suspect]
     Route: 048
     Dates: start: 20031116, end: 20031123
  6. MYCOPHENOLATE MOFETIL [Suspect]
     Route: 048
     Dates: start: 20031124, end: 20031124
  7. DACLIZUMAB [Suspect]
     Route: 042
     Dates: start: 20030924, end: 20030924
  8. DACLIZUMAB [Suspect]
     Route: 042
     Dates: start: 20031003, end: 20031104
  9. SIROLIMUS [Suspect]
     Route: 048
     Dates: start: 20031106, end: 20040204
  10. SIROLIMUS [Suspect]
     Route: 048
     Dates: start: 20030923, end: 20030925
  11. SIROLIMUS [Suspect]
     Route: 048
     Dates: start: 20030926, end: 20031003
  12. SIROLIMUS [Suspect]
     Route: 048
     Dates: start: 20031004, end: 20031013
  13. SIROLIMUS [Suspect]
     Route: 048
     Dates: start: 20031014, end: 20031023
  14. SIROLIMUS [Suspect]
     Route: 048
     Dates: start: 20031024, end: 20031105
  15. SIROLIMUS [Suspect]
     Route: 048
     Dates: start: 20040205
  16. PREDNISONE [Suspect]
     Route: 048
     Dates: start: 20040110
  17. PREDNISONE [Suspect]
     Route: 048
     Dates: start: 20030926, end: 20031009
  18. PREDNISONE [Suspect]
     Route: 048
     Dates: start: 20031010, end: 20031020
  19. PREDNISONE [Suspect]
     Route: 048
     Dates: start: 20031021, end: 20040109
  20. METHYLPREDNISOLONE [Suspect]
     Dosage: FREQUENCY PROVIDED AS 'ONCE'.
     Route: 042
     Dates: start: 20030923, end: 20030923
  21. METHYLPREDNISOLONE [Suspect]
     Dosage: FREQUENCY PROVIDED AS 'ONCE'.
     Route: 042
     Dates: start: 20030924, end: 20030924
  22. METHYLPREDNISOLONE [Suspect]
     Dosage: FREQUENCY PROVIDED AS 'ONCE'.
     Route: 042
     Dates: start: 20030925, end: 20031003
  23. METHYLPREDNISOLONE [Suspect]
     Dosage: FREQUENCY PROVIDED AS 'ONCE'.
     Route: 042
     Dates: start: 20031004, end: 20031102
  24. METHYLPREDNISOLONE [Suspect]
     Dosage: FREQUENCY PROVIDED AS 'ONCE'.
     Route: 042
     Dates: start: 20031103
  25. ORTHOCLONE OKT3 [Concomitant]
     Dosage: PROVIDED AS 5MG ON 15 NOV 2003 AND 2.5MG ON 16, 19, 20, 22 AND 24 NOV 2003.
     Dates: start: 20031115, end: 20031124
  26. SULPHAMETHOXAZOLE + TRIMETHOPRIM [Concomitant]
     Route: 048
     Dates: start: 20030927
  27. OMEPRAZOLE [Concomitant]
     Route: 048
     Dates: start: 20030924
  28. NIFEDIPINE [Concomitant]
     Route: 048
     Dates: start: 20031020, end: 20031118
  29. AMLODIPINE [Concomitant]
     Dosage: REPORTED AS 10MG BID 16-NOV-03 TO 26-NOV-03; THEN 5MG BID 27-NOV-2003, ONGOING.
     Route: 048
     Dates: start: 20031116

REACTIONS (7)
  - DEHYDRATION [None]
  - GASTROENTERITIS [None]
  - METABOLIC ACIDOSIS [None]
  - PNEUMONIA [None]
  - RENAL IMPAIRMENT [None]
  - STRONGYLOIDIASIS [None]
  - TRANSPLANT REJECTION [None]
